FAERS Safety Report 7880987 (Version 2)
Quarter: 2014Q1

REPORT INFORMATION
  Report Type: Spontaneous
  Country: US (occurrence: US)
  Receive Date: 20110401
  Receipt Date: 20140205
  Transmission Date: 20141002
  Serious: Yes (Hospitalization)
  Sender: FDA-Public Use
  Company Number: US-BAYER-2011-027931

PATIENT
  Age: 28 Year
  Sex: Female
  Weight: 68 kg

DRUGS (4)
  1. YAZ [Suspect]
     Dosage: UNK
     Dates: start: 200706, end: 2009
  2. YASMIN [Suspect]
     Dosage: UNK
     Dates: start: 200706
  3. OCELLA [Suspect]
     Dosage: UNK
     Dates: start: 2005
  4. VITAMIN C [Concomitant]

REACTIONS (8)
  - Cholecystectomy [None]
  - Cholecystitis acute [None]
  - Injury [None]
  - Pain [None]
  - General physical health deterioration [None]
  - Anxiety [None]
  - Anhedonia [None]
  - Emotional distress [None]
